FAERS Safety Report 9094908 (Version 1)
Quarter: 2013Q1

REPORT INFORMATION
  Report Type: Spontaneous
  Country: US (occurrence: None)
  Receive Date: 20130214
  Receipt Date: 20130214
  Transmission Date: 20140127
  Serious: Yes (Hospitalization)
  Sender: FDA-Public Use
  Company Number: None

PATIENT
  Age: 66 Year
  Sex: Female
  Weight: 96 kg

DRUGS (2)
  1. SITAGLIPTIN [Suspect]
     Indication: TYPE 2 DIABETES MELLITUS
     Route: 048
  2. SITAGLIPTIN [Concomitant]

REACTIONS (3)
  - Abdominal pain [None]
  - Pancreatitis acute [None]
  - Lactic acidosis [None]
